FAERS Safety Report 9524599 (Version 2)
Quarter: 2013Q3

REPORT INFORMATION
  Report Type: Report from Study
  Country: CA (occurrence: CA)
  Receive Date: 20130916
  Receipt Date: 20130918
  Transmission Date: 20140515
  Serious: Yes (Death, Hospitalization)
  Sender: FDA-Public Use
  Company Number: PHHY2013CA101843

PATIENT
  Age: 84 Year
  Sex: Male
  Weight: 73 kg

DRUGS (3)
  1. ACLASTA [Suspect]
     Indication: OSTEOPOROSIS
     Dosage: ONCE YEARLY
     Route: 042
     Dates: start: 20100921
  2. ACLASTA [Suspect]
     Dosage: ONCE YEARLY
     Route: 042
     Dates: start: 20110927
  3. ACLASTA [Suspect]
     Dosage: ONCE YEARLY
     Route: 042
     Dates: start: 20121128

REACTIONS (5)
  - Coronary artery disease [Fatal]
  - Arrhythmia [Fatal]
  - Loss of consciousness [Unknown]
  - Circulatory collapse [Unknown]
  - Syncope [Unknown]
